FAERS Safety Report 4879062-3 (Version None)
Quarter: 2005Q4

REPORT INFORMATION
  Report Type: 
  Country: None (occurrence: None)
  Receive Date: 20051209
  Receipt Date: 20050617
  Transmission Date: 20060501
  Serious: Yes (Hospitalization)
  Sender: FDA-Public Use
  Company Number: 220002M04USA

PATIENT
  Age: 13 Year
  Sex: Male
  Weight: 28.2 kg

DRUGS (4)
  1. SAIZEN [Suspect]
     Indication: GROWTH HORMONE DEFICIENCY
     Dosage: 1.16 MG, 1 IN 1 DAYS
     Dates: start: 20031213, end: 20040312
  2. SYNTHROID [Concomitant]
  3. METADATE (METHYLPHENIDATE) [Concomitant]
  4. LEXAPRO [Concomitant]

REACTIONS (5)
  - ABNORMAL BEHAVIOUR [None]
  - AGGRESSION [None]
  - DEPRESSION [None]
  - MEDICATION ERROR [None]
  - SUICIDAL IDEATION [None]
